FAERS Safety Report 19235932 (Version 1)
Quarter: 2021Q2

REPORT INFORMATION
  Report Type: Other
  Country: CA (occurrence: CA)
  Receive Date: 20210510
  Receipt Date: 20210510
  Transmission Date: 20210717
  Serious: Yes (Hospitalization)
  Sender: FDA-Public Use
  Company Number: CA-APOTEX-2021AP010896

PATIENT
  Age: 52 Year
  Sex: Female

DRUGS (6)
  1. MOXIFLOXACIN. [Suspect]
     Active Substance: MOXIFLOXACIN
     Indication: PERIORBITAL CELLULITIS
     Dosage: 0.5 PERCENT, BID
     Route: 047
  2. METRONIDAZOLE. [Concomitant]
     Active Substance: METRONIDAZOLE
     Indication: PERIORBITAL CELLULITIS
     Dosage: 500 MILLIGRAM, TID
     Route: 042
  3. VANCOMYCIN HYDROCHLORIDE. [Suspect]
     Active Substance: VANCOMYCIN HYDROCHLORIDE
     Indication: PERIORBITAL CELLULITIS
     Dosage: UNK UNK, BID
     Route: 047
  4. VANCOMYCIN HYDROCHLORIDE. [Suspect]
     Active Substance: VANCOMYCIN HYDROCHLORIDE
     Indication: PERIORBITAL CELLULITIS
     Dosage: 1 GRAM, BID
     Route: 042
  5. METHAZOLAMIDE. [Concomitant]
     Active Substance: METHAZOLAMIDE
     Indication: PERIORBITAL CELLULITIS
     Dosage: 50 MILLIGRAM, TID
     Route: 048
  6. CIPROFLOXACIN. [Concomitant]
     Active Substance: CIPROFLOXACIN
     Indication: PERIORBITAL CELLULITIS
     Dosage: 400 MILLIGRAM, BID
     Route: 042

REACTIONS (2)
  - Drug intolerance [Unknown]
  - Pyrexia [Unknown]
